FAERS Safety Report 11357364 (Version 1)
Quarter: 2015Q3

REPORT INFORMATION
  Report Type: Spontaneous
  Country: US (occurrence: US)
  Receive Date: 20150803
  Receipt Date: 20150803
  Transmission Date: 20151125
  Serious: No
  Sender: FDA-Public Use
  Company Number: US-ELI_LILLY_AND_COMPANY-US201402004597

PATIENT
  Sex: Male

DRUGS (1)
  1. STRATTERA [Suspect]
     Active Substance: ATOMOXETINE HYDROCHLORIDE
     Indication: ATTENTION DEFICIT/HYPERACTIVITY DISORDER
     Dosage: 10 MG, QD
     Dates: start: 20140205

REACTIONS (7)
  - Anxiety [Unknown]
  - Heart rate increased [Unknown]
  - Testicular disorder [Unknown]
  - Paraesthesia [Unknown]
  - Male orgasmic disorder [Unknown]
  - Dry mouth [Unknown]
  - Constipation [Unknown]
